FAERS Safety Report 18272673 (Version 2)
Quarter: 2021Q1

REPORT INFORMATION
  Report Type: Spontaneous
  Country: US (occurrence: US)
  Receive Date: 20200916
  Receipt Date: 20210205
  Transmission Date: 20210419
  Serious: Yes (Other)
  Sender: FDA-Public Use
  Company Number: US-GLAXOSMITHKLINE-US2020AMR183330

PATIENT
  Sex: Female

DRUGS (1)
  1. BENLYSTA [Suspect]
     Active Substance: BELIMUMAB
     Indication: LUPUS NEPHRITIS
     Dosage: UNK UNK, WE
     Dates: start: 201701

REACTIONS (7)
  - Ill-defined disorder [Not Recovered/Not Resolved]
  - Transplant [Not Recovered/Not Resolved]
  - Pruritus [Unknown]
  - Fatigue [Unknown]
  - Transplant rejection [Unknown]
  - Encapsulating peritoneal sclerosis [Unknown]
  - Nephrectomy [Unknown]

NARRATIVE: CASE EVENT DATE: 2019
